FAERS Safety Report 5163878-2 (Version None)
Quarter: 2006Q4

REPORT INFORMATION
  Report Type: 
  Country: None (occurrence: None)
  Receive Date: 20061204
  Receipt Date: 20061031
  Transmission Date: 20070319
  Serious: Yes (Other)
  Sender: FDA-Public Use
  Company Number: JP-BRISTOL-MYERS SQUIBB COMPANY-13571039

PATIENT
  Age: 63 Year
  Sex: Male

DRUGS (11)
  1. ABILIFY [Suspect]
     Indication: RESTLESSNESS
     Route: 048
     Dates: start: 20060817, end: 20060913
  2. TRAZODONE HCL [Suspect]
     Route: 048
     Dates: end: 20060914
  3. CHLORPROMAZINE HCL [Suspect]
     Route: 048
     Dates: end: 20060913
  4. TOCOPHEROL CONCENTRATE CAP [Concomitant]
     Route: 048
  5. FAMOTIDINE [Concomitant]
     Route: 048
  6. MOSAPRIDE CITRATE [Concomitant]
     Route: 048
  7. URSODEOXYCHOLIC ACID [Concomitant]
     Route: 048
  8. BUTROPIUM BROMIDE [Concomitant]
     Route: 048
  9. FLUNITRAZEPAM [Concomitant]
     Route: 048
  10. SODIUM PICOSULFATE [Concomitant]
     Route: 048
  11. SENNA LEAF [Concomitant]
     Route: 048

REACTIONS (1)
  - NEUROLEPTIC MALIGNANT SYNDROME [None]
